FAERS Safety Report 26092556 (Version 1)
Quarter: 2025Q4

REPORT INFORMATION
  Report Type: Spontaneous
  Country: US (occurrence: US)
  Receive Date: 20251126
  Receipt Date: 20251126
  Transmission Date: 20260118
  Serious: No
  Sender: ROCHE
  Company Number: US-ROCHE-10000437979

PATIENT
  Age: 36 Year
  Sex: Female
  Weight: 56.7 kg

DRUGS (4)
  1. ACTEMRA [Suspect]
     Active Substance: TOCILIZUMAB
     Indication: Endocrine ophthalmopathy
     Dosage: STRENGTH: 162 MG/0.9 ML?LAST DOSE OF  TOCILIZUMAB WAS ON 30-OCT-2025.
     Route: 058
     Dates: start: 20250905
  2. ACTEMRA [Suspect]
     Active Substance: TOCILIZUMAB
     Indication: Graves^ disease
  3. ATENOLOL [Concomitant]
     Active Substance: ATENOLOL
     Indication: Tachycardia
     Route: 048
     Dates: start: 202504
  4. METHIMAZOLE [Concomitant]
     Active Substance: METHIMAZOLE
     Route: 048
     Dates: start: 202504

REACTIONS (4)
  - Product dose omission issue [Unknown]
  - Off label use [Unknown]
  - Device defective [Unknown]
  - No adverse event [Unknown]

NARRATIVE: CASE EVENT DATE: 20251114
